FAERS Safety Report 16148049 (Version 1)
Quarter: 2019Q2

REPORT INFORMATION
  Report Type: Spontaneous
  Country: US (occurrence: US)
  Receive Date: 20190402
  Receipt Date: 20190402
  Transmission Date: 20190711
  Serious: No
  Sender: FDA-Public Use
  Company Number: US-MYLANLABS-2019M1022776

PATIENT

DRUGS (2)
  1. CLONIDINE TRANSDERMAL SYSTEM [Suspect]
     Active Substance: CLONIDINE
     Indication: POST HERPETIC NEURALGIA
     Dosage: UNK
     Route: 062
  2. CLONIDINE TRANSDERMAL SYSTEM [Suspect]
     Active Substance: CLONIDINE
     Indication: NERVE INJURY

REACTIONS (4)
  - Application site dryness [Unknown]
  - Off label use [Recovering/Resolving]
  - Application site erythema [Unknown]
  - Application site pruritus [Unknown]
